FAERS Safety Report 5538183-2 (Version None)
Quarter: 2007Q4

REPORT INFORMATION
  Report Type: 
  Country: None (occurrence: None)
  Receive Date: 20071207
  Receipt Date: 20071129
  Transmission Date: 20080405
  Serious: Yes (Other)
  Sender: FDA-Public Use
  Company Number: US-PFIZER INC-2007101908

PATIENT
  Sex: Female
  Weight: 99.8 kg

DRUGS (5)
  1. CADUET [Suspect]
     Dates: start: 20070101, end: 20071128
  2. PROZAC [Concomitant]
  3. ALL OTHER THERAPEUTIC PRODUCTS [Concomitant]
  4. ACETYLSALICYLIC ACID SRT [Concomitant]
  5. CARBAMAZEPINE [Concomitant]

REACTIONS (5)
  - FEELING ABNORMAL [None]
  - GAIT DISTURBANCE [None]
  - INTENTIONAL DRUG MISUSE [None]
  - MUSCLE SPASMS [None]
  - PAIN [None]
